FAERS Safety Report 7453293 (Version 2)
Quarter: 2012Q4

REPORT INFORMATION
  Report Type: 
  Country: CA (occurrence: CA)
  Receive Date: 20100705
  Receipt Date: 20121106
  Transmission Date: 20130627
  Serious: Yes (Other)
  Sender: FDA-Public Use
  Company Number: PHHY2009CA16648

PATIENT
  Sex: Male

DRUGS (3)
  1. SANDOSTATIN LAR [Suspect]
     Indication: CARCINOID SYNDROME
     Dosage: 30 mg, QMO
     Route: 030
     Dates: start: 20080117
  2. SANDOSTATIN LAR [Suspect]
     Dosage: 40 mg, QD
     Route: 030
     Dates: start: 20090619, end: 20090619
  3. SANDOSTATIN LAR [Suspect]
     Dosage: 50 mg, every 4 weeks
     Route: 030

REACTIONS (9)
  - Gout [Unknown]
  - Blood pressure systolic increased [Unknown]
  - Blood pressure diastolic increased [Unknown]
  - Flushing [Unknown]
  - Fatigue [Unknown]
  - Blood glucose increased [Unknown]
  - Injection site pain [Unknown]
  - Diarrhoea [Unknown]
  - Nausea [Unknown]
